FAERS Safety Report 5368465-9 (Version None)
Quarter: 2007Q2

REPORT INFORMATION
  Report Type: 
  Country: None (occurrence: None)
  Receive Date: 20070625
  Receipt Date: 20070611
  Transmission Date: 20071010
  Serious: Yes (Hospitalization)
  Sender: FDA-Public Use
  Company Number: CA-ELI_LILLY_AND_COMPANY-CA200705004801

PATIENT
  Age: 67 Year
  Sex: Female

DRUGS (10)
  1. FORTEO [Suspect]
     Indication: OSTEOPOROSIS
     Dosage: 20 UG, DAILY (1/D)
     Route: 058
     Dates: start: 20070223
  2. PARIET [Concomitant]
  3. BUSCOPAN [Concomitant]
  4. CELEXA [Concomitant]
  5. ARTHROTEC [Concomitant]
  6. SYNTHROID [Concomitant]
  7. NOVOCAIN [Concomitant]
  8. NITRAZEPAM [Concomitant]
  9. MORPHINE [Concomitant]
  10. DEMEROL [Concomitant]
     Dosage: UNK, AS NEEDED

REACTIONS (2)
  - GASTROINTESTINAL STOMA COMPLICATION [None]
  - GASTROINTESTINAL TUBE INSERTION [None]
